FAERS Safety Report 22648353 (Version 1)
Quarter: 2023Q2

REPORT INFORMATION
  Report Type: Spontaneous
  Country: GB (occurrence: GB)
  Receive Date: 20230628
  Receipt Date: 20230628
  Transmission Date: 20230721
  Serious: Yes (Other)
  Sender: FDA-Public Use
  Company Number: GB-RELONP-2023SCRC048012

PATIENT
  Age: 75 Year
  Sex: Female

DRUGS (3)
  1. ALENDRONIC ACID [Suspect]
     Active Substance: ALENDRONIC ACID
     Indication: Osteoporosis
     Dosage: 70 MILLIGRAM
     Route: 065
  2. CALCIUM [Concomitant]
     Active Substance: CALCIUM
     Indication: Osteoporosis
     Dosage: UNK
     Route: 065
  3. VITAMIN D [Concomitant]
     Active Substance: VITAMIN D NOS
     Indication: Osteoporosis
     Dosage: UNK
     Route: 065

REACTIONS (23)
  - Suicidal ideation [Unknown]
  - Haemorrhagic hepatic cyst [Unknown]
  - Spinal fracture [Unknown]
  - Mental disorder [Unknown]
  - Dyspnoea [Unknown]
  - Chest discomfort [Unknown]
  - Bedridden [Unknown]
  - Movement disorder [Unknown]
  - Anger [Unknown]
  - Quality of life decreased [Unknown]
  - Body height decreased [Unknown]
  - Gait disturbance [Unknown]
  - Posture abnormal [Unknown]
  - Pain [Unknown]
  - Dysstasia [Unknown]
  - Feeling of despair [Unknown]
  - Abdominal pain upper [Unknown]
  - Muscle spasms [Unknown]
  - Back pain [Unknown]
  - Spinal pain [Unknown]
  - Musculoskeletal chest pain [Unknown]
  - Arthralgia [Unknown]
  - Abdominal distension [Recovering/Resolving]
